FAERS Safety Report 19681953 (Version 1)
Quarter: 2021Q3

REPORT INFORMATION
  Report Type: Spontaneous
  Country: DE (occurrence: DE)
  Receive Date: 20210810
  Receipt Date: 20210810
  Transmission Date: 20211014
  Serious: Yes (Hospitalization, Other)
  Sender: FDA-Public Use
  Company Number: DE-GLAXOSMITHKLINE-DECH2021GSK051969

PATIENT
  Age: 50 Year
  Sex: Male

DRUGS (3)
  1. METAMIZOLE [Suspect]
     Active Substance: METAMIZOLE
     Indication: PRODUCT USED FOR UNKNOWN INDICATION
  2. PARACETAMOL [Suspect]
     Active Substance: ACETAMINOPHEN
     Indication: PRODUCT USED FOR UNKNOWN INDICATION
     Dosage: UNK
  3. IBUPROFEN. [Suspect]
     Active Substance: IBUPROFEN
     Indication: PRODUCT USED FOR UNKNOWN INDICATION

REACTIONS (8)
  - Erythema multiforme [Recovering/Resolving]
  - Rash [Recovering/Resolving]
  - Dermatitis bullous [Recovering/Resolving]
  - Skin lesion [Recovering/Resolving]
  - Cheilitis [Recovering/Resolving]
  - Stomatitis [Recovering/Resolving]
  - Conjunctivitis [Unknown]
  - Dysuria [Recovering/Resolving]
